FAERS Safety Report 7383687-3 (Version None)
Quarter: 2011Q1

REPORT INFORMATION
  Report Type: 
  Country: None (occurrence: None)
  Receive Date: 20110330
  Receipt Date: 20110324
  Transmission Date: 20110831
  Serious: Yes (Hospitalization)
  Sender: FDA-Public Use
  Company Number: AU-ROCHE-753886

PATIENT
  Sex: Male
  Weight: 82.5 kg

DRUGS (6)
  1. GRANISETRON HYDROCHLORIDE [Suspect]
     Dosage: FREQUENCY: 1 TIME
     Route: 065
     Dates: start: 20101203, end: 20101203
  2. DOCETAXEL [Suspect]
     Dosage: FREQUENCY: 1 TIME
     Route: 042
     Dates: start: 20101203, end: 20101203
  3. CISPLATIN [Suspect]
     Dosage: FREQUENCY: 1 TIME
     Route: 042
     Dates: start: 20101203, end: 20101203
  4. APREPITANT [Concomitant]
     Route: 048
     Dates: start: 20101204
  5. FLUOROURACIL [Suspect]
     Dosage: FREQUENCY: DAILY
     Route: 042
     Dates: start: 20101203, end: 20101203
  6. CIPROFLOXACIN [Concomitant]
     Route: 048
     Dates: start: 20101207

REACTIONS (3)
  - RASH [None]
  - FEBRILE NEUTROPENIA [None]
  - PRESYNCOPE [None]
